FAERS Safety Report 6911630-7 (Version None)
Quarter: 2010Q3

REPORT INFORMATION
  Report Type: 
  Country: None (occurrence: None)
  Receive Date: 20100806
  Receipt Date: 20100728
  Transmission Date: 20110219
  Serious: Yes (Hospitalization)
  Sender: FDA-Public Use
  Company Number: CA-ABBOTT-10P-028-0640970-00

PATIENT
  Sex: Female
  Weight: 57 kg

DRUGS (1)
  1. MAVIK [Suspect]
     Indication: ESSENTIAL HYPERTENSION
     Dosage: 1MG DAILY
     Route: 048
     Dates: start: 20091119, end: 20091201

REACTIONS (2)
  - FALL [None]
  - HIP FRACTURE [None]
